FAERS Safety Report 6915287-0 (Version None)
Quarter: 2010Q3

REPORT INFORMATION
  Report Type: 
  Country: None (occurrence: None)
  Receive Date: 20100809
  Receipt Date: 20090901
  Transmission Date: 20110219
  Serious: No
  Sender: FDA-Public Use
  Company Number: US-ABBOTT-09P-163-0595242-00

PATIENT
  Sex: Male
  Weight: 72.64 kg

DRUGS (1)
  1. DEPAKOTE ER [Suspect]
     Indication: CONVULSION
     Dates: start: 20070101

REACTIONS (2)
  - PRURITUS [None]
  - RASH [None]
